FAERS Safety Report 21107112 (Version 1)
Quarter: 2022Q3

REPORT INFORMATION
  Report Type: Spontaneous
  Country: US (occurrence: None)
  Receive Date: 20220720
  Receipt Date: 20220720
  Transmission Date: 20221027
  Serious: No
  Sender: FDA-Public Use
  Company Number: None

PATIENT
  Age: 73 Year
  Sex: Male
  Weight: 67.5 kg

DRUGS (11)
  1. REVLIMID [Suspect]
     Active Substance: LENALIDOMIDE
     Indication: Plasma cell myeloma
     Dosage: OTHER FREQUENCY : 14 ON/14 OFF;?
     Route: 048
     Dates: start: 20211207
  2. bacitracin 500 unit/gram eye ointmen [Concomitant]
  3. Cymbalta 30 mg capsule,delayed release [Concomitant]
  4. Decadron 4 mg tablet [Concomitant]
  5. DEXAMETHASONE [Concomitant]
     Active Substance: DEXAMETHASONE
  6. HYDROXYZINE HYDROCHLORIDE [Concomitant]
     Active Substance: HYDROXYZINE HYDROCHLORIDE
  7. iron 325 mg (65 mg iron) table [Concomitant]
  8. levothyroxine 50 mcg tablet [Concomitant]
  9. Medrol (Pak) 4 mg tablets in a dose pack [Concomitant]
  10. triamcinolone acetonide 0.1 % lotion [Concomitant]
  11. Xyzal 5 mg tablet [Concomitant]

REACTIONS (1)
  - Rash [None]

NARRATIVE: CASE EVENT DATE: 20220622
